FAERS Safety Report 9161312 (Version 2)
Quarter: 2013Q2

REPORT INFORMATION
  Report Type: Spontaneous
  Country: US (occurrence: US)
  Receive Date: 20130313
  Receipt Date: 20130426
  Transmission Date: 20140414
  Serious: No
  Sender: FDA-Public Use
  Company Number: US-009507513-1303USA006287

PATIENT
  Age: 69 Year
  Sex: Female

DRUGS (10)
  1. CLARITIN LIQUIGELS [Suspect]
     Indication: HYPERSENSITIVITY
     Dosage: UNK, UNKNOWN
     Route: 048
     Dates: start: 20130205, end: 20130310
  2. CLARITIN LIQUIGELS [Suspect]
     Indication: SEASONAL ALLERGY
  3. POTASSIUM CHLORIDE [Concomitant]
     Indication: MINERAL SUPPLEMENTATION
     Dosage: 10 MEQ, BID
  4. TIZANIDINE HYDROCHLORIDE [Concomitant]
     Indication: MUSCLE SPASMS
     Dosage: 4 MG, PRN
  5. NITROSTAT TABLETS [Concomitant]
     Indication: ACUTE TONSILLITIS
     Dosage: 0.4 MG, PRN
  6. EPIPEN [Concomitant]
     Indication: HYPERSENSITIVITY
     Dosage: 0.3 MG, PRN
  7. CYCLOBENZAPRINE HYDROCHLORIDE [Concomitant]
     Indication: HYPOTONIA
     Dosage: 10 MG, Q8H
  8. LOTEMAX [Concomitant]
     Indication: PRODUCT USED FOR UNKNOWN INDICATION
     Dosage: UNK, BID
  9. TYLENOL EXTRA STRENGTH [Concomitant]
     Indication: PAIN
     Dosage: 1000 MG, PRN
  10. ASPIRIN [Concomitant]
     Indication: HEART RATE NORMAL
     Dosage: 81 MG, UNK

REACTIONS (4)
  - Oropharyngeal pain [Unknown]
  - Eye pruritus [Unknown]
  - Condition aggravated [Not Recovered/Not Resolved]
  - Drug ineffective [Unknown]
